FAERS Safety Report 6552309-3 (Version None)
Quarter: 2010Q1

REPORT INFORMATION
  Report Type: 
  Country: None (occurrence: None)
  Receive Date: 20100126
  Receipt Date: 20100120
  Transmission Date: 20100710
  Serious: Yes (Hospitalization, Other)
  Sender: FDA-Public Use
  Company Number: US-AMGEN-QUU386925

PATIENT
  Sex: Male

DRUGS (1)
  1. ARANESP [Suspect]
     Indication: RENAL FAILURE CHRONIC
     Dates: start: 20050101

REACTIONS (3)
  - ESCHERICHIA BACTERAEMIA [None]
  - SKIN INFECTION [None]
  - THERAPEUTIC RESPONSE DECREASED [None]
